FAERS Safety Report 8924925 (Version 2)
Quarter: 2012Q4

REPORT INFORMATION
  Report Type: 
  Country: US (occurrence: US)
  Receive Date: 20121126
  Receipt Date: 20121203
  Transmission Date: 20130627
  Serious: No
  Sender: FDA-Public Use
  Company Number: US-009507513-1211USA008628

PATIENT
  Sex: Male
  Weight: 127.5 kg

DRUGS (7)
  1. CLARITIN-D 12 HOUR [Suspect]
     Indication: NASOPHARYNGITIS
     Dosage: 5 mg, q12h
     Route: 048
     Dates: start: 20120923
  2. CLARITIN-D 12 HOUR [Suspect]
     Indication: OROPHARYNGEAL PAIN
  3. CLARITIN-D 12 HOUR [Suspect]
     Indication: NASAL CONGESTION
  4. VITAMINS (UNSPECIFIED) [Concomitant]
     Indication: PRODUCT USED FOR UNKNOWN INDICATION
     Dosage: UNK, Unknown
  5. CALCIUM (UNSPECIFIED) [Concomitant]
     Indication: PRODUCT USED FOR UNKNOWN INDICATION
     Dosage: UNK, Unknown
  6. MAGNESIUM (UNSPECIFIED) [Concomitant]
     Indication: PRODUCT USED FOR UNKNOWN INDICATION
     Dosage: UNK, Unknown
  7. ZINC (UNSPECIFIED) [Concomitant]
     Indication: PRODUCT USED FOR UNKNOWN INDICATION
     Dosage: UNK, Unknown

REACTIONS (1)
  - Abdominal pain upper [Recovered/Resolved]
